APPROVED DRUG PRODUCT: POTASSIUM IODIDE
Active Ingredient: POTASSIUM IODIDE
Strength: 1GM/ML **Federal Register determination that product was not discontinued or withdrawn for safety or effectiveness reasons**
Dosage Form/Route: SOLUTION;ORAL
Application: N018551 | Product #001
Applicant: ROXANE LABORATORIES INC
Approved: Feb 19, 1982 | RLD: Yes | RS: No | Type: DISCN